FAERS Safety Report 9660295 (Version 1)
Quarter: 2013Q4

REPORT INFORMATION
  Report Type: Spontaneous
  Country: US (occurrence: US)
  Receive Date: 20131031
  Receipt Date: 20131031
  Transmission Date: 20140711
  Serious: Yes (Other)
  Sender: FDA-Public Use
  Company Number: US-ELI_LILLY_AND_COMPANY-US201310008423

PATIENT
  Sex: Female

DRUGS (1)
  1. FORTEO [Suspect]
     Indication: PROPHYLAXIS
     Dosage: 20 UG, UNKNOWN
     Route: 065
     Dates: start: 20130301, end: 20131021

REACTIONS (1)
  - Colon cancer [Unknown]
